FAERS Safety Report 7079404-7 (Version None)
Quarter: 2010Q4

REPORT INFORMATION
  Report Type: 
  Country: None (occurrence: None)
  Receive Date: 20101102
  Receipt Date: 20101029
  Transmission Date: 20110411
  Serious: Yes (Other)
  Sender: FDA-Public Use
  Company Number: SG-MERCK-1010USA03646

PATIENT
  Sex: Male

DRUGS (1)
  1. TRUSOPT [Suspect]
     Route: 047
     Dates: start: 20101028

REACTIONS (3)
  - EYE PAIN [None]
  - HYPOAESTHESIA [None]
  - HYPOAESTHESIA FACIAL [None]
